FAERS Safety Report 10556936 (Version 1)
Quarter: 2014Q4

REPORT INFORMATION
  Report Type: Spontaneous
  Country: US (occurrence: None)
  Receive Date: 20141029
  Receipt Date: 20141029
  Transmission Date: 20150529
  Serious: Yes (Other)
  Sender: FDA-Public Use
  Company Number: None

PATIENT
  Age: 61 Year
  Sex: Female
  Weight: 40.37 kg

DRUGS (1)
  1. OFLOXACIN. [Suspect]
     Active Substance: OFLOXACIN
     Indication: CONJUNCTIVITIS
     Dosage: 1 DROP INTO RIGHT EYE EVERY 4 HOURS AND 1 DROP INTO LEFT EYE TWICE DAILY EYE DROPS
     Dates: start: 20140929, end: 20140930

REACTIONS (5)
  - Swelling [None]
  - Middle insomnia [None]
  - Dysacusis [None]
  - Tinnitus [None]
  - Tympanic membrane disorder [None]

NARRATIVE: CASE EVENT DATE: 20140930
